FAERS Safety Report 4490479-1 (Version None)
Quarter: 2004Q4

REPORT INFORMATION
  Report Type: 
  Country: None (occurrence: None)
  Receive Date: 20041102
  Receipt Date: 20041026
  Transmission Date: 20050328
  Serious: Yes (Hospitalization)
  Sender: FDA-Public Use
  Company Number: US-BRISTOL-MYERS SQUIBB COMPANY-12744850

PATIENT
  Age: 69 Year
  Sex: Male
  Weight: 93 kg

DRUGS (7)
  1. CETUXIMAB [Suspect]
     Indication: PANCREATIC CARCINOMA
     Dosage: INITIAL TX DATE:11-OCT-04. TOTAL DOSE ADM: 1280MG. PT ONLY REC'D 2 WKS OF CYCLE 1 PRIOR TO EVENT
     Route: 042
     Dates: start: 20041018, end: 20041018
  2. DOCETAXEL [Suspect]
     Indication: PANCREATIC CARCINOMA
     Dosage: INITIAL TX DATE: 11-OCT-04. TOTAL DOSE ADM: 138MG.
     Route: 042
     Dates: start: 20041018, end: 20041018
  3. IRINOTECAN HCL [Suspect]
     Indication: PANCREATIC CARCINOMA
     Dosage: INITIAL TX DATE: 11-OCT-04. TOTAL DOSE ADM: 199 MG.
     Route: 042
     Dates: start: 20041018, end: 20041018
  4. ENOXAPARIN SODIUM [Suspect]
     Indication: PREMEDICATION
     Dosage: INITIAL TX DATE: 11-OCT-04. TOTAL DOSE ADM: 480 MG.
     Dates: start: 20041021, end: 20041021
  5. MARINOL [Concomitant]
  6. OXANDROLONE [Concomitant]
  7. TOPROL-XL [Concomitant]

REACTIONS (6)
  - DEHYDRATION [None]
  - DIARRHOEA [None]
  - FEBRILE NEUTROPENIA [None]
  - NAUSEA [None]
  - PLATELET COUNT DECREASED [None]
  - STOMATITIS [None]
